FAERS Safety Report 19603666 (Version 4)
Quarter: 2021Q3

REPORT INFORMATION
  Report Type: Spontaneous
  Country: US (occurrence: US)
  Receive Date: 20210724
  Receipt Date: 20210811
  Transmission Date: 20211014
  Serious: No
  Sender: FDA-Public Use
  Company Number: US-SA-2021SA242056

PATIENT
  Age: 63 Year
  Sex: Female

DRUGS (2)
  1. NOVOLOG [Concomitant]
     Active Substance: INSULIN ASPART
     Dosage: 25 IU, Q8H
     Route: 065
  2. LANTUS SOLOSTAR [Suspect]
     Active Substance: INSULIN GLARGINE
     Indication: TYPE 2 DIABETES MELLITUS
     Dosage: 75 IU, QD(EVERY NIGHT )
     Route: 065
     Dates: start: 2015

REACTIONS (2)
  - Blood glucose increased [Unknown]
  - Device operational issue [Unknown]

NARRATIVE: CASE EVENT DATE: 202107
